FAERS Safety Report 6414357-3 (Version None)
Quarter: 2009Q4

REPORT INFORMATION
  Report Type: 
  Country: None (occurrence: None)
  Receive Date: 20091026
  Receipt Date: 20091012
  Transmission Date: 20100525
  Serious: Yes (Hospitalization, Other)
  Sender: FDA-Public Use
  Company Number: FR-MYLANLABS-2009S1017731

PATIENT
  Age: 43 Year
  Sex: Female

DRUGS (2)
  1. CHLOROQUINE [Interacting]
     Indication: DRUG USE FOR UNKNOWN INDICATION
     Dosage: 200 MG/DAY (4 MG/KG/DAY)
     Dates: start: 20031101
  2. DEXTROPROPOXYPHENE [Suspect]
     Indication: SCIATICA
     Dates: start: 20070101

REACTIONS (2)
  - DRUG INTERACTION [None]
  - DRUG LEVEL INCREASED [None]
